FAERS Safety Report 9062414 (Version 2)
Quarter: 2013Q1

REPORT INFORMATION
  Report Type: Spontaneous
  Country: NL (occurrence: NL)
  Receive Date: 20130213
  Receipt Date: 20130304
  Transmission Date: 20140127
  Serious: Yes (Hospitalization)
  Sender: FDA-Public Use
  Company Number: NL-GLAXOSMITHKLINE-B0867195A

PATIENT
  Age: 13 None
  Sex: Male
  Weight: 40 kg

DRUGS (2)
  1. FLIXOTIDE [Suspect]
     Indication: ASTHMA
     Dosage: 50UG TWICE PER DAY
     Route: 055
     Dates: start: 20121018
  2. FLIXOTIDE [Suspect]
     Indication: ASTHMA
     Dosage: 100UG TWICE PER DAY
     Route: 055
     Dates: start: 20130131, end: 20130204

REACTIONS (3)
  - Dyspnoea [Recovering/Resolving]
  - Chest pain [Recovering/Resolving]
  - Nausea [Recovering/Resolving]
